FAERS Safety Report 15562868 (Version 2)
Quarter: 2019Q1

REPORT INFORMATION
  Report Type: Spontaneous
  Country: US (occurrence: US)
  Receive Date: 20181029
  Receipt Date: 20190107
  Transmission Date: 20190417
  Serious: Yes (Hospitalization, Disabling)
  Sender: FDA-Public Use
  Company Number: US-OTSUKA-2018_022980

PATIENT
  Sex: Male

DRUGS (1)
  1. ABILIFY [Suspect]
     Active Substance: ARIPIPRAZOLE
     Indication: PRODUCT USED FOR UNKNOWN INDICATION
     Dosage: UNK
     Route: 065
     Dates: start: 201204, end: 201305

REACTIONS (13)
  - Divorced [Unknown]
  - Emotional distress [Unknown]
  - Homeless [Unknown]
  - Obsessive-compulsive disorder [Unknown]
  - Condition aggravated [Recovered/Resolved]
  - Economic problem [Unknown]
  - Injury [Unknown]
  - Mental disorder [Unknown]
  - Mental impairment [Unknown]
  - Gambling disorder [Recovered/Resolved]
  - Disability [Unknown]
  - Anhedonia [Unknown]
  - Social problem [Unknown]

NARRATIVE: CASE EVENT DATE: 201205
